FAERS Safety Report 9458071 (Version 1)
Quarter: 2013Q3

REPORT INFORMATION
  Report Type: Report from Study
  Country: US (occurrence: US)
  Receive Date: 20130814
  Receipt Date: 20130814
  Transmission Date: 20140515
  Serious: Yes (Hospitalization)
  Sender: FDA-Public Use
  Company Number: US-JNJFOC-20130803192

PATIENT
  Age: 44 Year
  Sex: Female

DRUGS (5)
  1. REMICADE [Suspect]
     Indication: ARTHRITIS
     Dosage: STARTED INFLIXIMAB ON AN UNSPECIFIED DATE SINCE 3-4 YEARS AGO
     Route: 042
  2. METHOTREXATE [Concomitant]
     Indication: ARTHRITIS
     Dosage: 4 IN AM 4 IN PM
     Route: 048
  3. FOLIC ACID [Concomitant]
     Indication: ARTHRITIS
     Route: 048
  4. LOVENOX [Concomitant]
     Indication: FACTOR V DEFICIENCY
     Route: 065
     Dates: start: 201307
  5. WARFARIN [Concomitant]
     Indication: FACTOR V DEFICIENCY
     Dosage: 2MG 3 DAYS WEEK, 2.5MG 4 DAYS??A WEEK
     Route: 048
     Dates: start: 2006, end: 201306

REACTIONS (4)
  - Intestinal perforation [Recovered/Resolved]
  - Intestinal stenosis [Not Recovered/Not Resolved]
  - Crohn^s disease [Unknown]
  - Fatigue [Not Recovered/Not Resolved]
